FAERS Safety Report 7434436-1 (Version None)
Quarter: 2011Q2

REPORT INFORMATION
  Report Type: 
  Country: None (occurrence: None)
  Receive Date: 20110425
  Receipt Date: 20110419
  Transmission Date: 20111010
  Serious: Yes (Other)
  Sender: FDA-Public Use
  Company Number: US-BRISTOL-MYERS SQUIBB COMPANY-15591019

PATIENT
  Age: 61 Year
  Sex: Female
  Weight: 70 kg

DRUGS (4)
  1. ABILIFY [Suspect]
     Indication: THINKING ABNORMAL
     Dosage: 5MG TAB BLUE COLOUR 3 AT THE SAME TIME,15MG 4-5WEEKS.INITIAL DOSE - 5MG
     Route: 048
     Dates: start: 20080801
  2. ABILIFY [Suspect]
     Indication: INJURY
     Dosage: 5MG TAB BLUE COLOUR 3 AT THE SAME TIME,15MG 4-5WEEKS.INITIAL DOSE - 5MG
     Route: 048
     Dates: start: 20080801
  3. ABILIFY [Suspect]
     Indication: SCHIZOAFFECTIVE DISORDER
     Dosage: 5MG TAB BLUE COLOUR 3 AT THE SAME TIME,15MG 4-5WEEKS.INITIAL DOSE - 5MG
     Route: 048
     Dates: start: 20080801
  4. ABILIFY [Suspect]
     Indication: DEPRESSION
     Dosage: 5MG TAB BLUE COLOUR 3 AT THE SAME TIME,15MG 4-5WEEKS.INITIAL DOSE - 5MG
     Route: 048
     Dates: start: 20080801

REACTIONS (4)
  - MANIA [None]
  - FEELING ABNORMAL [None]
  - INSOMNIA [None]
  - RESTLESSNESS [None]
